FAERS Safety Report 8191593-X (Version None)
Quarter: 2012Q1

REPORT INFORMATION
  Report Type: 
  Country: None (occurrence: None)
  Receive Date: 20120307
  Receipt Date: 20110826
  Transmission Date: 20120608
  Serious: No
  Sender: FDA-Public Use
  Company Number: US-ASTRAZENECA-2010SE52668

PATIENT
  Age: 47 Year
  Sex: Female
  Weight: 111.6 kg

DRUGS (23)
  1. IBUPROFEN [Concomitant]
     Indication: HEADACHE
     Route: 048
     Dates: start: 19750101
  2. METFORMIN HCL [Concomitant]
     Indication: DIABETES MELLITUS
     Route: 048
  3. NIACIN [Concomitant]
     Dates: start: 20110701
  4. VITAMIN TAB [Concomitant]
     Dosage: AT AM
  5. MELATONIN [Concomitant]
  6. ZOMIG [Suspect]
     Route: 048
     Dates: start: 20050101
  7. NAMINDA [Concomitant]
     Route: 048
  8. FENOFIBRATE [Concomitant]
     Indication: BLOOD CHOLESTEROL ABNORMAL
     Route: 048
     Dates: start: 20110101
  9. ASCORBIC ACID [Concomitant]
     Dosage: AT SUPPER
  10. FLACCID OIL [Concomitant]
  11. FISH OIL [Concomitant]
  12. GABAPENTIN [Concomitant]
     Indication: HEADACHE
     Route: 048
     Dates: start: 20101001
  13. BUSPIRONE HCL [Concomitant]
     Route: 048
  14. CALCIUM [Concomitant]
  15. METHERGINE [Concomitant]
     Indication: HEADACHE
     Route: 048
     Dates: start: 20070101
  16. BRAND SYNTHROIDS [Concomitant]
     Dosage: 0.175MG IN AN EMPTY STOMACH MONDAYS, WEDNESDAY AND FRIDAYS AND
  17. TRIAMTERENE AND HYDROCHLOROTHIAZIDE [Concomitant]
     Indication: HYPERTENSION
     Dosage: 37.5/25 MG DAILY
     Route: 048
  18. NADOLOL [Concomitant]
     Indication: HEADACHE
     Route: 048
     Dates: start: 20051201
  19. SIMVASTATIN [Concomitant]
     Indication: BLOOD CHOLESTEROL ABNORMAL
     Route: 048
  20. ZOMIG [Suspect]
     Indication: HEADACHE
     Route: 045
     Dates: start: 20050101
  21. SEROQUEL [Suspect]
     Indication: SLEEP DISORDER
     Route: 048
  22. BRAND EFFEXOR [Concomitant]
     Indication: HEADACHE
     Route: 048
     Dates: start: 20051201
  23. LEXAPRO [Concomitant]
     Route: 048

REACTIONS (14)
  - THYROID DISORDER [None]
  - GASTROOESOPHAGEAL REFLUX DISEASE [None]
  - ANAEMIA [None]
  - SLEEP DISORDER [None]
  - DRUG DOSE OMISSION [None]
  - HEADACHE [None]
  - DIABETES MELLITUS [None]
  - IRRITABLE BOWEL SYNDROME [None]
  - INCORRECT ROUTE OF DRUG ADMINISTRATION [None]
  - DEPRESSION [None]
  - DYSPHONIA [None]
  - BLOOD TRIGLYCERIDES ABNORMAL [None]
  - HYPERTENSION [None]
  - DRUG INEFFECTIVE FOR UNAPPROVED INDICATION [None]
